FAERS Safety Report 24302996 (Version 1)
Quarter: 2024Q3

REPORT INFORMATION
  Report Type: Spontaneous
  Country: GB (occurrence: GB)
  Receive Date: 20240910
  Receipt Date: 20240910
  Transmission Date: 20241017
  Serious: Yes (Death, Other)
  Sender: ADVANZ PHARMA
  Company Number: GB-PHARMVIT-4556-3352-ER24-RN1158

PATIENT

DRUGS (2)
  1. PREDNISOLONE [Suspect]
     Active Substance: PREDNISOLONE
     Indication: Pemphigoid
     Dosage: 20 MG, QD
     Route: 048
  2. PREDNISOLONE [Suspect]
     Active Substance: PREDNISOLONE
     Dosage: 40 MG, QD
     Route: 048

REACTIONS (4)
  - Death [Fatal]
  - Renal impairment [Not Recovered/Not Resolved]
  - Delirium [Not Recovered/Not Resolved]
  - Immunosuppression [Not Recovered/Not Resolved]
